FAERS Safety Report 11086551 (Version 1)
Quarter: 2015Q2

REPORT INFORMATION
  Report Type: Spontaneous
  Country: US (occurrence: US)
  Receive Date: 20150504
  Receipt Date: 20150504
  Transmission Date: 20150821
  Serious: No
  Sender: FDA-Public Use
  Company Number: US-009507513-1504USA023927

PATIENT

DRUGS (1)
  1. DULERA [Suspect]
     Active Substance: FORMOTEROL FUMARATE DIHYDRATE\MOMETASONE FUROATE
     Dosage: STRENGTH 200MCG/5MCG
     Route: 055

REACTIONS (4)
  - Wheezing [Unknown]
  - Nasal obstruction [Unknown]
  - Ear discomfort [Unknown]
  - Productive cough [Unknown]
